FAERS Safety Report 7529845-6 (Version None)
Quarter: 2011Q2

REPORT INFORMATION
  Report Type: 
  Country: None (occurrence: None)
  Receive Date: 20110607
  Receipt Date: 20110524
  Transmission Date: 20111010
  Serious: Yes (Life-Threatening, Hospitalization)
  Sender: FDA-Public Use
  Company Number: FR-CELGENEUS-056-20785-11053360

PATIENT
  Sex: Male

DRUGS (4)
  1. THALIDOMIDE [Suspect]
     Indication: MULTIPLE MYELOMA
     Route: 048
     Dates: start: 20070101, end: 20070101
  2. REVLIMID [Suspect]
     Indication: MULTIPLE MYELOMA
     Dosage: 25 MILLIGRAM
     Route: 048
     Dates: start: 20070101, end: 20090101
  3. REVLIMID [Suspect]
     Dosage: 10 MILLIGRAM
     Route: 048
     Dates: start: 20090101, end: 20110101
  4. LEVOTHYROXINE SODIUM [Concomitant]
     Dosage: 175 MICROGRAM
     Route: 065

REACTIONS (2)
  - CARDIAC FAILURE [None]
  - ACUTE PULMONARY OEDEMA [None]
